FAERS Safety Report 8879505 (Version 2)
Quarter: 2012Q4

REPORT INFORMATION
  Report Type: 
  Country: JP (occurrence: JP)
  Receive Date: 20121101
  Receipt Date: 20121228
  Transmission Date: 20130627
  Serious: Yes (Death, Life-Threatening, Hospitalization, Other)
  Sender: FDA-Public Use
  Company Number: JP-ASTELLAS-2012US010626

PATIENT
  Age: 63 Year
  Sex: Male
  Weight: 55 kg

DRUGS (11)
  1. TARCEVA [Suspect]
     Indication: LUNG NEOPLASM MALIGNANT
     Dosage: 150 mg, UID/QD
     Route: 048
     Dates: start: 20121006, end: 20121014
  2. BETAMETHASONE [Suspect]
     Indication: METASTASES TO CENTRAL NERVOUS SYSTEM
     Dosage: 1 mg, UID/QD
     Route: 048
     Dates: end: 201210
  3. DICLOFENAC SODIUM [Suspect]
     Indication: CANCER PAIN
     Dosage: 25 mg, UID/QD
     Route: 054
     Dates: start: 20121008, end: 2012
  4. ETIZOLAM [Concomitant]
     Indication: ANXIETY
     Dosage: 2 mg, UID/QD
     Route: 048
     Dates: start: 2012
  5. FENTOS [Concomitant]
     Indication: CANCER PAIN
     Dosage: 6 mg, UID/QD
     Route: 062
     Dates: start: 201208, end: 2012
  6. LYRICA [Concomitant]
     Indication: CANCER PAIN
     Dosage: 100 mg, UID/QD
     Route: 048
     Dates: start: 201208, end: 2012
  7. PARIET [Concomitant]
     Indication: PROPHYLAXIS AGAINST GASTROINTESTINAL ULCER
     Dosage: 10 mg, UID/QD
     Route: 048
     Dates: start: 201208, end: 20121014
  8. MAGLAX [Concomitant]
     Indication: CONSTIPATION PROPHYLAXIS
     Dosage: 1500 mg, UID/QD
     Route: 048
     Dates: start: 201208, end: 2012
  9. OXINORM                            /00045603/ [Concomitant]
     Indication: CANCER PAIN
     Dosage: 5 mg, UID/QD
     Route: 048
     Dates: start: 201209, end: 2012
  10. HIRUDOID                           /00723701/ [Concomitant]
     Indication: PROPHYLAXIS
     Dosage: UNK
     Route: 003
     Dates: start: 20121006, end: 2012
  11. ANPEC                              /00014302/ [Concomitant]
     Indication: CANCER PAIN
     Dosage: 10 mg, UID/QD
     Route: 054
     Dates: start: 20121007, end: 2012

REACTIONS (14)
  - Cholecystitis [Recovering/Resolving]
  - Rectal ulcer [Recovering/Resolving]
  - Shock [Unknown]
  - Cystitis [Unknown]
  - Bronchitis [Unknown]
  - Restlessness [Unknown]
  - Anxiety [Unknown]
  - Dermatitis acneiform [Recovering/Resolving]
  - Aspartate aminotransferase increased [Unknown]
  - Alanine aminotransferase increased [Unknown]
  - Blood bilirubin increased [Unknown]
  - Non-small cell lung cancer [Fatal]
  - Hypoalbuminaemia [Unknown]
  - Blood bilirubin increased [Unknown]
